FAERS Safety Report 13144473 (Version 1)
Quarter: 2017Q1

REPORT INFORMATION
  Report Type: Spontaneous
  Country: US (occurrence: US)
  Receive Date: 20170124
  Receipt Date: 20170124
  Transmission Date: 20170428
  Serious: No
  Sender: FDA-Public Use
  Company Number: US-MYLANLABS-2016M1037780

PATIENT
  Age: 65 Year
  Sex: Male
  Weight: 115.2 kg

DRUGS (5)
  1. FENOFIBRATE TABLETS, USP [Suspect]
     Active Substance: FENOFIBRATE
     Indication: BLOOD CHOLESTEROL INCREASED
     Dosage: 54 MG, PM
     Route: 048
     Dates: start: 20160807, end: 20160816
  2. INLYTA [Suspect]
     Active Substance: AXITINIB
     Indication: RENAL CELL CARCINOMA
     Dosage: 5 MG, BID
     Route: 048
     Dates: start: 2014
  3. FENOFIBRATE. [Suspect]
     Active Substance: FENOFIBRATE
     Indication: BLOOD CHOLESTEROL INCREASED
     Dosage: 54 MG, QD
     Route: 048
     Dates: start: 20160724, end: 20160730
  4. METFORMIN [Concomitant]
     Active Substance: METFORMIN HYDROCHLORIDE
     Indication: DIABETES MELLITUS
     Dosage: 500 MG, BID
  5. WARFARIN [Concomitant]
     Active Substance: WARFARIN
     Dosage: 5 MG 5X WEEK AND 2 MG 2XWEEK

REACTIONS (5)
  - Potentiating drug interaction [Recovered/Resolved]
  - Dry throat [Recovered/Resolved]
  - Productive cough [Recovered/Resolved]
  - Loose tooth [Recovered/Resolved]
  - Palmar-plantar erythrodysaesthesia syndrome [Recovering/Resolving]

NARRATIVE: CASE EVENT DATE: 201607
